FAERS Safety Report 4488426-1 (Version None)
Quarter: 2004Q4

REPORT INFORMATION
  Report Type: 
  Country: None (occurrence: None)
  Receive Date: 20041026
  Receipt Date: 20041014
  Transmission Date: 20050328
  Serious: Yes (Death)
  Sender: FDA-Public Use
  Company Number: 25332

PATIENT
  Age: 15 Month
  Sex: Female

DRUGS (1)
  1. FLECAINIDE ACETATE [Suspect]
     Indication: WOLFF-PARKINSON-WHITE SYNDROME
     Dosage: ORAL
     Route: 048
     Dates: start: 20030101, end: 20041006

REACTIONS (2)
  - ACCIDENTAL OVERDOSE [None]
  - CARDIAC ARREST [None]
